FAERS Safety Report 10152536 (Version 1)
Quarter: 2014Q2

REPORT INFORMATION
  Report Type: Spontaneous
  Country: US (occurrence: US)
  Receive Date: 20140505
  Receipt Date: 20140505
  Transmission Date: 20141212
  Serious: Yes (Other)
  Sender: FDA-Public Use
  Company Number: US-GILEAD-2014-0101389

PATIENT
  Sex: Male

DRUGS (2)
  1. LETAIRIS [Suspect]
     Indication: PRODUCT USED FOR UNKNOWN INDICATION
     Dosage: 5 MG, QD
     Route: 065
     Dates: start: 20131026
  2. ADCIRCA [Concomitant]

REACTIONS (4)
  - Neoplasm malignant [Unknown]
  - Lymphoedema [Unknown]
  - Fluid retention [Unknown]
  - Dyspnoea [Unknown]
